FAERS Safety Report 11379840 (Version 1)
Quarter: 2015Q3

REPORT INFORMATION
  Report Type: Spontaneous
  Country: US (occurrence: US)
  Receive Date: 20150814
  Receipt Date: 20150814
  Transmission Date: 20151125
  Serious: No
  Sender: FDA-Public Use
  Company Number: US-AMGEN-USASP2015081482

PATIENT
  Age: 44 Year
  Sex: Male

DRUGS (1)
  1. ENBREL [Suspect]
     Active Substance: ETANERCEPT
     Indication: RHEUMATOID ARTHRITIS
     Dosage: 25 MG, TWICE A MONTH
     Route: 065
     Dates: start: 20150228

REACTIONS (3)
  - Erythema [Unknown]
  - Intentional product misuse [Unknown]
  - Swelling [Unknown]

NARRATIVE: CASE EVENT DATE: 2015
